FAERS Safety Report 5143866-2 (Version None)
Quarter: 2006Q4

REPORT INFORMATION
  Report Type: 
  Country: None (occurrence: None)
  Receive Date: 20061102
  Receipt Date: 20061102
  Transmission Date: 20070319
  Serious: Yes (Other)
  Sender: FDA-Public Use
  Company Number: None

PATIENT
  Age: 54 Year
  Sex: Female
  Weight: 156.5 kg

DRUGS (13)
  1. TARCEVA [Suspect]
     Indication: BREAST CANCER
     Dosage: 100 MG PO 1 X DAY
     Route: 048
     Dates: start: 20060726, end: 20060802
  2. RAD 001 5 MG [Suspect]
     Dosage: 5 MG PO 1X DAY
     Route: 048
     Dates: start: 20060726, end: 20060802
  3. DILAUDID [Concomitant]
  4. OXYCONTIN [Concomitant]
  5. KETAMINE HCL [Concomitant]
  6. SENNA-C PLUS [Concomitant]
  7. LASIX [Concomitant]
  8. LEXAPRO [Concomitant]
  9. ALPRAZOLAN [Concomitant]
  10. LEVAQUIN [Concomitant]
  11. LYRICA [Concomitant]
  12. TYLENOL [Concomitant]
  13. COMPAZINE [Concomitant]

REACTIONS (5)
  - AXILLARY MASS [None]
  - BODY TEMPERATURE INCREASED [None]
  - DISEASE PROGRESSION [None]
  - INFUSION SITE CELLULITIS [None]
  - THERAPY CESSATION [None]
